FAERS Safety Report 8902289 (Version 1)
Quarter: 2012Q4

REPORT INFORMATION
  Report Type: 
  Country: GB (occurrence: GB)
  Receive Date: 20121112
  Receipt Date: 20121112
  Transmission Date: 20130627
  Serious: Yes (Other)
  Sender: FDA-Public Use
  Company Number: GB-JNJFOC-20121010642

PATIENT
  Age: 68 Year
  Sex: Female

DRUGS (10)
  1. RISPERDAL CONSTA [Suspect]
     Indication: SCHIZOPHRENIA
     Route: 030
     Dates: start: 20120906, end: 20121006
  2. RISPERDAL CONSTA [Suspect]
     Indication: PSYCHOTIC DISORDER
     Route: 030
     Dates: start: 20120906, end: 20121006
  3. SIMVASTATIN [Concomitant]
     Indication: BLOOD CHOLESTEROL INCREASED
     Route: 065
  4. OMEPRAZOLE [Concomitant]
     Indication: BLOOD CHOLESTEROL INCREASED
     Route: 065
  5. ADCAL D3 [Concomitant]
     Indication: BLOOD CHOLESTEROL INCREASED
     Route: 065
  6. CLOPIDOGREL [Concomitant]
     Indication: BLOOD CHOLESTEROL INCREASED
     Route: 065
  7. MESALAZINE [Concomitant]
     Indication: BLOOD CHOLESTEROL INCREASED
     Route: 065
  8. LOSARTAN [Concomitant]
     Indication: BLOOD CHOLESTEROL INCREASED
     Route: 065
  9. INDAPAMIDE [Concomitant]
     Indication: BLOOD CHOLESTEROL INCREASED
     Route: 065
  10. SYMBICORT [Concomitant]
     Indication: BLOOD CHOLESTEROL INCREASED
     Route: 055

REACTIONS (4)
  - Disturbance in attention [Recovered/Resolved]
  - Activities of daily living impaired [Recovered/Resolved]
  - Somnolence [Recovered/Resolved]
  - Fatigue [Recovered/Resolved]
